FAERS Safety Report 8494707-7 (Version None)
Quarter: 2012Q3

REPORT INFORMATION
  Report Type: 
  Country: None (occurrence: None)
  Receive Date: 20120709
  Receipt Date: 20120627
  Transmission Date: 20120928
  Serious: Yes (Hospitalization, Other)
  Sender: FDA-Public Use
  Company Number: BE-CELGENEUS-013-21880-12053349

PATIENT
  Sex: Female
  Weight: 62.6 kg

DRUGS (24)
  1. PLATELETS [Concomitant]
     Route: 065
     Dates: start: 20120327
  2. REVLIMID [Suspect]
     Dosage: 10 MILLIGRAM
     Route: 048
     Dates: start: 20110624, end: 20111228
  3. DEXAMETHASONE SODIUM PHOSPHATE [Suspect]
     Indication: MULTIPLE MYELOMA
     Route: 048
     Dates: start: 20110105
  4. FLEXIUM [Concomitant]
     Route: 065
     Dates: start: 20120213
  5. RED BLOOD CELLS [Concomitant]
     Route: 065
     Dates: start: 20111018
  6. CETAVLEX [Concomitant]
     Route: 065
     Dates: start: 20120417
  7. REVLIMID [Suspect]
     Dosage: 15 MILLIGRAM
     Route: 048
     Dates: start: 20110428, end: 20110616
  8. BISOPROLOL FUMARATE [Concomitant]
     Route: 065
     Dates: start: 20060101
  9. REVLIMID [Suspect]
     Dosage: 15 MILLIGRAM
     Route: 048
     Dates: start: 20120105, end: 20120125
  10. PANTOPRAZOLE [Concomitant]
     Route: 065
     Dates: start: 20120418
  11. REVLIMID [Suspect]
     Dosage: 25 MILLIGRAM
     Route: 048
     Dates: start: 20120202
  12. ASPIRIN [Concomitant]
     Indication: THROMBOSIS
     Dosage: 80 GRAM
     Route: 041
     Dates: start: 20110105
  13. MEROPENEM [Concomitant]
     Route: 065
     Dates: start: 20120419, end: 20120430
  14. FORLAX [Concomitant]
     Route: 065
     Dates: start: 20120430
  15. REVLIMID [Suspect]
     Route: 048
     Dates: start: 20110203, end: 20110420
  16. REVLIMID [Suspect]
     Dosage: 10 MILLIGRAM
     Route: 048
     Dates: start: 20120426
  17. REVLIMID [Suspect]
     Dosage: 10 MILLIGRAM
     Route: 048
     Dates: start: 20120531
  18. DEXAMETHASONE SODIUM PHOSPHATE [Suspect]
     Route: 048
     Dates: start: 20110624, end: 20110720
  19. DEXAMETHASONE SODIUM PHOSPHATE [Suspect]
     Route: 048
     Dates: start: 20120426
  20. CRANBERRY EXTRACT [Concomitant]
     Route: 065
     Dates: start: 20110301
  21. R CALM CREME [Concomitant]
     Route: 065
     Dates: start: 20120213
  22. REVLIMID [Suspect]
     Indication: MULTIPLE MYELOMA
     Dosage: 10 MILLIGRAM
     Route: 048
     Dates: start: 20110105
  23. SYMBICORT [Concomitant]
     Indication: COUGH
     Route: 065
  24. FLEXIUM [Concomitant]
     Route: 065
     Dates: start: 20101002, end: 20111102

REACTIONS (2)
  - PYREXIA [None]
  - LUNG SQUAMOUS CELL CARCINOMA STAGE UNSPECIFIED [None]
